FAERS Safety Report 19889954 (Version 2)
Quarter: 2021Q4

REPORT INFORMATION
  Report Type: Spontaneous
  Country: CA (occurrence: CA)
  Receive Date: 20210928
  Receipt Date: 20211119
  Transmission Date: 20220303
  Serious: Yes (Hospitalization, Other)
  Sender: FDA-Public Use
  Company Number: CA-SA-SAC20210923001347

PATIENT
  Age: 65 Year
  Sex: Female

DRUGS (1)
  1. SODIUM FERRIC GLUCONATE COMPLEX [Suspect]
     Active Substance: SODIUM FERRIC GLUCONATE COMPLEX
     Dosage: UNK
     Dates: start: 20210210, end: 20210210

REACTIONS (4)
  - Fishbane reaction [Recovered/Resolved]
  - Chest discomfort [Recovered/Resolved]
  - Nausea [Recovered/Resolved]
  - Peripheral swelling [Recovered/Resolved]

NARRATIVE: CASE EVENT DATE: 20210210
